APPROVED DRUG PRODUCT: CLOZARIL
Active Ingredient: CLOZAPINE
Strength: 25MG
Dosage Form/Route: TABLET;ORAL
Application: N019758 | Product #001 | TE Code: AB
Applicant: HERITAGE LIFE SCIENCES BARBADOS INC
Approved: Sep 26, 1989 | RLD: Yes | RS: No | Type: RX